FAERS Safety Report 17966992 (Version 1)
Quarter: 2020Q3

REPORT INFORMATION
  Report Type: Spontaneous
  Country: IT (occurrence: IT)
  Receive Date: 20200701
  Receipt Date: 20200701
  Transmission Date: 20201103
  Serious: Yes (Hospitalization)
  Sender: FDA-Public Use
  Company Number: IT-SGP-000005

PATIENT
  Age: 59 Year

DRUGS (7)
  1. METHYLPREDNISOLONE. [Suspect]
     Active Substance: METHYLPREDNISOLONE
     Indication: COVID-19
     Dosage: 1 MG/KG/DAY
     Route: 065
  2. GENTAMICIN. [Concomitant]
     Active Substance: GENTAMICIN
     Indication: RESPIRATORY FAILURE
     Route: 065
  3. PIPERACILLIN,TAZOBACTAM [Concomitant]
     Active Substance: PIPERACILLIN SODIUM\TAZOBACTAM SODIUM
     Indication: RESPIRATORY FAILURE
     Route: 065
  4. AMIKACIN. [Concomitant]
     Active Substance: AMIKACIN
     Indication: RESPIRATORY FAILURE
     Route: 065
  5. LINEZOLID. [Concomitant]
     Active Substance: LINEZOLID
     Indication: RESPIRATORY FAILURE
     Route: 065
  6. CEFEPIME [Concomitant]
     Active Substance: CEFEPIME HYDROCHLORIDE
     Indication: RESPIRATORY FAILURE
     Route: 065
  7. MEROPENEM. [Concomitant]
     Active Substance: MEROPENEM
     Indication: RESPIRATORY FAILURE
     Route: 065

REACTIONS (3)
  - Confusional state [Unknown]
  - Product use in unapproved indication [Unknown]
  - Condition aggravated [Unknown]
